FAERS Safety Report 9056186 (Version 1)
Quarter: 2013Q1

REPORT INFORMATION
  Report Type: Spontaneous
  Country: US (occurrence: US)
  Receive Date: 20130205
  Receipt Date: 20130205
  Transmission Date: 20140127
  Serious: Yes (Death)
  Sender: FDA-Public Use
  Company Number: US-PFIZER INC-2013016483

PATIENT
  Sex: Male

DRUGS (1)
  1. CADUET [Suspect]
     Dosage: 5-20 UNK, UNK

REACTIONS (1)
  - Leukaemia [Fatal]
